FAERS Safety Report 6384798-1 (Version None)
Quarter: 2009Q4

REPORT INFORMATION
  Report Type: 
  Country: None (occurrence: None)
  Receive Date: 20091001
  Receipt Date: 20090928
  Transmission Date: 20100525
  Serious: Yes (Hospitalization)
  Sender: FDA-Public Use
  Company Number: US-ROXANE LABORATORIES, INC.-2009-RO-01009RO

PATIENT

DRUGS (1)
  1. PREDNISONE TAB [Suspect]

REACTIONS (4)
  - FIBULA FRACTURE [None]
  - PAIN [None]
  - TENDON RUPTURE [None]
  - TIBIA FRACTURE [None]
